FAERS Safety Report 5613048-6 (Version None)
Quarter: 2008Q1

REPORT INFORMATION
  Report Type: 
  Country: None (occurrence: None)
  Receive Date: 20080204
  Receipt Date: 20080123
  Transmission Date: 20080703
  Serious: Yes (Death, Hospitalization, Other)
  Sender: FDA-Public Use
  Company Number: FR-PFIZER INC-2008007569

PATIENT
  Sex: Female

DRUGS (4)
  1. LYRICA [Suspect]
     Indication: PAIN
  2. OXYCONTIN [Interacting]
     Indication: PAIN
  3. OXYNORM [Interacting]
     Indication: PAIN
  4. CORTICOSTEROIDS [Concomitant]
     Indication: PAIN

REACTIONS (7)
  - BRADYPNOEA [None]
  - BRONCHIAL CARCINOMA [None]
  - DRUG INTERACTION [None]
  - MEDICATION ERROR [None]
  - OVERDOSE [None]
  - PAIN [None]
  - SOMNOLENCE [None]
